FAERS Safety Report 24985308 (Version 2)
Quarter: 2025Q2

REPORT INFORMATION
  Report Type: Other
  Country: JP (occurrence: JP)
  Receive Date: 20250219
  Receipt Date: 20250430
  Transmission Date: 20250717
  Serious: Yes (Other)
  Sender: EMD SERONO INC
  Company Number: JP-Merck Healthcare KGaA-2025006996

PATIENT
  Age: 30 Year
  Sex: Female

DRUGS (2)
  1. GONAL-F [Suspect]
     Active Substance: FOLLITROPIN
     Indication: Ovulation induction
  2. BUSERELIN ACETATE [Suspect]
     Active Substance: BUSERELIN ACETATE
     Indication: Product used for unknown indication

REACTIONS (1)
  - Hydrosalpinx [Recovered/Resolved]

NARRATIVE: CASE EVENT DATE: 20230220
